FAERS Safety Report 9774631 (Version 2)
Quarter: 2014Q1

REPORT INFORMATION
  Report Type: Report from Study
  Country: US (occurrence: US)
  Receive Date: 20131220
  Receipt Date: 20140327
  Transmission Date: 20141002
  Serious: Yes (Hospitalization)
  Sender: FDA-Public Use
  Company Number: US-ASTELLAS-2013US013074

PATIENT
  Age: 10 Year
  Sex: Female

DRUGS (3)
  1. TACROLIMUS OINTMENT [Suspect]
     Indication: DERMATITIS ATOPIC
     Dosage: 0.1 %, UNKNOWN/D
     Route: 061
     Dates: start: 20040311
  2. PREDNISONE [Concomitant]
     Indication: DERMATITIS ATOPIC
     Dosage: UNK
     Route: 048
  3. PREDNISOLONE [Concomitant]
     Indication: DERMATITIS ATOPIC
     Dosage: UNK
     Route: 048

REACTIONS (3)
  - Off label use [Unknown]
  - Asthma [Unknown]
  - Asthma [Unknown]
